FAERS Safety Report 16184708 (Version 1)
Quarter: 2019Q2

REPORT INFORMATION
  Report Type: Spontaneous
  Country: FR (occurrence: FR)
  Receive Date: 20190411
  Receipt Date: 20190411
  Transmission Date: 20190711
  Serious: Yes (Other)
  Sender: FDA-Public Use
  Company Number: FR-MYLANLABS-2019M1034647

PATIENT
  Age: 53 Year
  Sex: Male

DRUGS (1)
  1. RISPERIDONE MYLAN [Suspect]
     Active Substance: RISPERIDONE
     Indication: PRODUCT USED FOR UNKNOWN INDICATION
     Dosage: UNK

REACTIONS (5)
  - Gynaecomastia [Unknown]
  - Libido disorder [Unknown]
  - Presyncope [Unknown]
  - Loss of consciousness [Unknown]
  - Ejaculation failure [Unknown]
